FAERS Safety Report 19932781 (Version 1)
Quarter: 2021Q4

REPORT INFORMATION
  Report Type: Spontaneous
  Country: US (occurrence: US)
  Receive Date: 20211007
  Receipt Date: 20211007
  Transmission Date: 20220303
  Serious: Yes (Hospitalization)
  Sender: FDA-Public Use
  Company Number: None

PATIENT
  Age: 63 Year
  Sex: Female
  Weight: 67.5 kg

DRUGS (1)
  1. IDECABTAGENE VICLEUCEL [Suspect]
     Active Substance: IDECABTAGENE VICLEUCEL
     Indication: Plasma cell myeloma
     Dosage: ?          OTHER FREQUENCY:ONCE;
     Route: 042
     Dates: start: 20210819, end: 20210819

REACTIONS (12)
  - Cytokine release syndrome [None]
  - Dyspnoea [None]
  - Haemoglobin decreased [None]
  - Platelet count decreased [None]
  - Haemorrhage [None]
  - Febrile neutropenia [None]
  - Urinary tract infection [None]
  - Urine leukocyte esterase positive [None]
  - Bacterial test positive [None]
  - Immune effector cell-associated neurotoxicity syndrome [None]
  - Disease progression [None]
  - Weaning failure [None]

NARRATIVE: CASE EVENT DATE: 20210820
